FAERS Safety Report 12800884 (Version 1)
Quarter: 2016Q4

REPORT INFORMATION
  Report Type: Spontaneous
  Country: JP (occurrence: JP)
  Receive Date: 20161002
  Receipt Date: 20161002
  Transmission Date: 20170207
  Serious: Yes (Other)
  Sender: FDA-Public Use
  Company Number: PHJP2016JP027722

PATIENT
  Age: 39 Year
  Sex: Female

DRUGS (1)
  1. NEORAL [Suspect]
     Active Substance: CYCLOSPORINE
     Indication: GLOMERULONEPHRITIS CHRONIC
     Dosage: UNK
     Route: 048

REACTIONS (5)
  - Kidney fibrosis [Unknown]
  - Product use issue [Unknown]
  - Chronic allograft nephropathy [Unknown]
  - Renal tubular atrophy [Unknown]
  - Nephropathy toxic [Unknown]
